FAERS Safety Report 12335235 (Version 2)
Quarter: 2016Q2

REPORT INFORMATION
  Report Type: Report from Study
  Country: US (occurrence: US)
  Receive Date: 20160504
  Receipt Date: 20160511
  Transmission Date: 20160815
  Serious: Yes (Other)
  Sender: FDA-Public Use
  Company Number: US-ABBVIE-16P-163-1616795-00

PATIENT
  Sex: Female

DRUGS (2)
  1. LUPRON DEPOT [Suspect]
     Active Substance: LEUPROLIDE ACETATE
     Indication: ENDOMETRIOSIS
     Route: 030
     Dates: start: 201402, end: 201407
  2. LUPRON DEPOT [Suspect]
     Active Substance: LEUPROLIDE ACETATE
     Dosage: FOR A TOTAL OF SIX MONTHS
     Route: 030
     Dates: start: 20160503

REACTIONS (6)
  - Abdominal pain upper [Recovered/Resolved]
  - Endometriosis [Unknown]
  - Pelvic pain [Recovered/Resolved]
  - Uterine spasm [Recovered/Resolved]
  - Adhesion [Unknown]
  - Vomiting [Recovered/Resolved]

NARRATIVE: CASE EVENT DATE: 2015
